FAERS Safety Report 4560021-5 (Version None)
Quarter: 2005Q1

REPORT INFORMATION
  Report Type: 
  Country: None (occurrence: None)
  Receive Date: 20050125
  Receipt Date: 20050113
  Transmission Date: 20050727
  Serious: Yes (Hospitalization)
  Sender: FDA-Public Use
  Company Number: US-JNJFOC-20050103282

PATIENT
  Sex: Female

DRUGS (12)
  1. INFLIXIMAB [Suspect]
     Indication: RHEUMATOID ARTHRITIS
     Route: 042
     Dates: start: 20001201, end: 20010901
  2. HUMIRA [Concomitant]
  3. SYNTHROID [Concomitant]
  4. PLAQUENIL [Concomitant]
  5. PREDNISONE [Concomitant]
  6. PLAVIX [Concomitant]
  7. LOPRESSOR [Concomitant]
  8. DIOVAN [Concomitant]
  9. MEVACOR [Concomitant]
  10. ASPIRIN [Concomitant]
  11. PERCOCET [Concomitant]
  12. PERCOCET [Concomitant]

REACTIONS (2)
  - MYOCARDIAL INFARCTION [None]
  - SPLENECTOMY [None]
